FAERS Safety Report 6381555-7 (Version None)
Quarter: 2009Q3

REPORT INFORMATION
  Report Type: 
  Country: None (occurrence: None)
  Receive Date: 20090925
  Receipt Date: 20090911
  Transmission Date: 20100115
  Serious: Yes (Other)
  Sender: FDA-Public Use
  Company Number: AUR-APL-2009-00649

PATIENT
  Sex: Female

DRUGS (3)
  1. PAROXETINE [Suspect]
  2. METHYLENE BLUE [Suspect]
     Dosage: 1MG/KG,
  3. ANAESTHETIC [Concomitant]

REACTIONS (8)
  - AGITATION [None]
  - APHASIA [None]
  - CONFUSIONAL STATE [None]
  - DRUG TOXICITY [None]
  - EYE MOVEMENT DISORDER [None]
  - HYPERREFLEXIA [None]
  - HYPERTENSION [None]
  - MYDRIASIS [None]
